FAERS Safety Report 5821837-8 (Version None)
Quarter: 2008Q3

REPORT INFORMATION
  Report Type: 
  Country: None (occurrence: None)
  Receive Date: 20080724
  Receipt Date: 20080709
  Transmission Date: 20090109
  Serious: No
  Sender: FDA-Public Use
  Company Number: US-BOEHRINGER INGELHEIM GMBH, GERMANY-2008-BP-10709BP

PATIENT
  Sex: Female

DRUGS (1)
  1. MICARDIS HCT [Suspect]
     Indication: HYPERTENSION
     Route: 048
     Dates: start: 20080707, end: 20080708

REACTIONS (5)
  - ANAL PRURITUS [None]
  - DRUG INEFFECTIVE [None]
  - EAR PRURITUS [None]
  - EYE PRURITUS [None]
  - PRURITUS GENITAL [None]
